FAERS Safety Report 9106504 (Version 1)
Quarter: 2013Q1

REPORT INFORMATION
  Report Type: Spontaneous
  Country: US (occurrence: US)
  Receive Date: 20130221
  Receipt Date: 20130221
  Transmission Date: 20140127
  Serious: Yes (Other)
  Sender: FDA-Public Use
  Company Number: PHEH2012US015556

PATIENT
  Sex: Male

DRUGS (7)
  1. EXTAVIA [Suspect]
     Indication: MULTIPLE SCLEROSIS
     Dosage: 0.25 MG, QOD
     Route: 058
     Dates: start: 201107
  2. EXTAVIA [Suspect]
     Dosage: 0.3 MG, QOD
     Route: 058
  3. VITAMIN B [Concomitant]
  4. VITAMIN B12 [Concomitant]
  5. VITAMIN C [Concomitant]
  6. VITAMIN D [Concomitant]
  7. STROVITE [Concomitant]

REACTIONS (6)
  - General physical health deterioration [Unknown]
  - Feeling hot [Not Recovered/Not Resolved]
  - Pain in extremity [Not Recovered/Not Resolved]
  - Gait disturbance [Unknown]
  - Hot flush [Not Recovered/Not Resolved]
  - Injection site erythema [Recovered/Resolved]
